FAERS Safety Report 5341873-8 (Version None)
Quarter: 2007Q2

REPORT INFORMATION
  Report Type: 
  Country: None (occurrence: None)
  Receive Date: 20070530
  Receipt Date: 20070522
  Transmission Date: 20071010
  Serious: Yes (Hospitalization)
  Sender: FDA-Public Use
  Company Number: 2007BI005488

PATIENT
  Age: 41 Year
  Sex: Female

DRUGS (1)
  1. AVONEX [Suspect]
     Indication: MULTIPLE SCLEROSIS
     Dosage: 30 UG; QW; IM
     Route: 030
     Dates: start: 20060904

REACTIONS (7)
  - CATARACT [None]
  - INFLAMMATION [None]
  - INFLUENZA LIKE ILLNESS [None]
  - INSOMNIA [None]
  - PERIPHLEBITIS [None]
  - RETINAL DETACHMENT [None]
  - VISUAL ACUITY REDUCED [None]
